FAERS Safety Report 5752877-5 (Version None)
Quarter: 2008Q2

REPORT INFORMATION
  Report Type: 
  Country: None (occurrence: None)
  Receive Date: 20080529
  Receipt Date: 20080522
  Transmission Date: 20081010
  Serious: Yes (Other)
  Sender: FDA-Public Use
  Company Number: US-BOEHRINGER INGELHEIM GMBH, GERMANY-2008-BP-06522BP

PATIENT
  Sex: Male

DRUGS (8)
  1. FLOMAX [Suspect]
     Indication: BENIGN PROSTATIC HYPERPLASIA
     Route: 048
     Dates: start: 20010101
  2. FLOMAX [Suspect]
     Indication: PROSTATIC DISORDER
  3. COREG [Concomitant]
     Dosage: 3.12
  4. COMBIVENT [Concomitant]
  5. ADVAIR DISKUS 100/50 [Concomitant]
  6. OMEPRAZOLE [Concomitant]
  7. PRAVASTATIN [Concomitant]
  8. LYRICA [Concomitant]

REACTIONS (5)
  - ANGIOPATHY [None]
  - LUNG NEOPLASM MALIGNANT [None]
  - MYOCARDIAL INFARCTION [None]
  - NOCTURIA [None]
  - VASCULAR OCCLUSION [None]
